FAERS Safety Report 24424212 (Version 1)
Quarter: 2024Q4

REPORT INFORMATION
  Report Type: Spontaneous
  Country: US (occurrence: US)
  Receive Date: 20241010
  Receipt Date: 20241010
  Transmission Date: 20250115
  Serious: Yes (Death, Hospitalization)
  Sender: TEVA
  Company Number: US-TEVA-VS-3251588

PATIENT
  Age: 4 Year
  Sex: Female

DRUGS (7)
  1. LEVETIRACETAM [Suspect]
     Active Substance: LEVETIRACETAM
     Indication: Acute haemorrhagic leukoencephalitis
     Route: 065
  2. FOSPHENYTOIN [Suspect]
     Active Substance: FOSPHENYTOIN
     Indication: Acute haemorrhagic leukoencephalitis
     Route: 065
  3. LORAZEPAM [Suspect]
     Active Substance: LORAZEPAM
     Indication: Acute haemorrhagic leukoencephalitis
     Route: 065
  4. NOREPINEPHRINE [Suspect]
     Active Substance: NOREPINEPHRINE\NOREPINEPHRINE BITARTRATE
     Indication: Acute haemorrhagic leukoencephalitis
     Dosage: MAXIMUM DOSING OF 0.04?MCG/KG/MIN
     Route: 065
  5. IMMUNE GLOBULIN NOS [Suspect]
     Active Substance: IMMUNE GLOBULIN NOS
     Indication: Acute haemorrhagic leukoencephalitis
     Dosage: 2 G/KG
     Route: 042
  6. SODIUM CHLORIDE [Suspect]
     Active Substance: SODIUM CHLORIDE
     Indication: Acute haemorrhagic leukoencephalitis
     Dosage: HYPERTONIC SALINE
     Route: 065
  7. METHYLPREDNISOLONE [Suspect]
     Active Substance: METHYLPREDNISOLONE
     Indication: Acute haemorrhagic leukoencephalitis
     Route: 042

REACTIONS (1)
  - Drug ineffective [Fatal]
